FAERS Safety Report 13299992 (Version 1)
Quarter: 2017Q1

REPORT INFORMATION
  Report Type: Spontaneous
  Country: IN (occurrence: IN)
  Receive Date: 20170306
  Receipt Date: 20170306
  Transmission Date: 20170428
  Serious: Yes (Hospitalization, Other)
  Sender: FDA-Public Use
  Company Number: IN-IMPAX LABORATORIES, INC-2017-IPXL-00495

PATIENT
  Age: 17 Year
  Sex: Female

DRUGS (3)
  1. CHLOROQUINE PHOSPHATE. [Suspect]
     Active Substance: CHLOROQUINE PHOSPHATE
     Dosage: 150 MG OF BASE IN TWO DIVIDED DOSAGES
     Route: 048
  2. CHLOROQUINE PHOSPHATE. [Suspect]
     Active Substance: CHLOROQUINE PHOSPHATE
     Indication: MALARIA
     Dosage: 5 ML (40 MG/ML)
     Route: 030
  3. PARACETAMOL [Concomitant]
     Active Substance: ACETAMINOPHEN
     Indication: PYREXIA
     Dosage: 500 MG, PRN
     Route: 048

REACTIONS (5)
  - Headache [Recovered/Resolved]
  - Insomnia [Recovered/Resolved]
  - Mania [Recovered/Resolved]
  - Depression [Recovered/Resolved]
  - Suicidal ideation [Recovered/Resolved]
